FAERS Safety Report 6024425-6 (Version None)
Quarter: 2008Q4

REPORT INFORMATION
  Report Type: 
  Country: None (occurrence: None)
  Receive Date: 20081224
  Receipt Date: 20081212
  Transmission Date: 20090506
  Serious: Yes (Disabling, Other)
  Sender: FDA-Public Use
  Company Number: 2008-01804

PATIENT
  Age: 71 Year
  Sex: Male
  Weight: 60 kg

DRUGS (9)
  1. VELCADE [Suspect]
     Indication: MULTIPLE MYELOMA
     Dosage: 2.2 MG, INTRAVENOUS
     Route: 042
     Dates: start: 20080512, end: 20080522
  2. ITRACONAZOLE [Suspect]
     Indication: PROPHYLAXIS
     Dosage: 200 MG, ORAL
     Route: 048
     Dates: start: 20080501, end: 20080527
  3. DECADRON [Concomitant]
  4. LOXONIN (LOXOPROFEN SODIUM) [Concomitant]
  5. SODIUM BICARBONATE [Concomitant]
  6. BACTRAMIN (SULFAMETHOXAZOLE, TRIMETHOPRIN) [Concomitant]
  7. HUMALOG [Concomitant]
  8. MUCOSTA (REBAMIPIDE) [Concomitant]
  9. LASIX [Concomitant]

REACTIONS (16)
  - DRUG HYPERSENSITIVITY [None]
  - DRUG LEVEL INCREASED [None]
  - FAECAL INCONTINENCE [None]
  - FEBRILE NEUTROPENIA [None]
  - HEPATIC FUNCTION ABNORMAL [None]
  - ILEUS [None]
  - INJECTION SITE RASH [None]
  - JAUNDICE [None]
  - MOTOR DYSFUNCTION [None]
  - NERVE INJURY [None]
  - NEUROGENIC BLADDER [None]
  - PERIPHERAL SENSORY NEUROPATHY [None]
  - PHLEBITIS [None]
  - PNEUMONIA [None]
  - PYELONEPHRITIS [None]
  - THROMBOCYTOPENIA [None]
